FAERS Safety Report 9625800 (Version 2)
Quarter: 2014Q1

REPORT INFORMATION
  Report Type: Not Available
  Country: IT (occurrence: IT)
  Receive Date: 20131016
  Receipt Date: 20140103
  Transmission Date: 20141002
  Serious: Yes (Other)
  Sender: FDA-Public Use
  Company Number: IT-ASTELLAS-2013EU008795

PATIENT
  Age: 1 Year
  Sex: Female
  Weight: 7 kg

DRUGS (3)
  1. PROGRAF [Suspect]
     Indication: PROPHYLAXIS AGAINST TRANSPLANT REJECTION
     Dosage: 1 MG, UNKNOWN/D
     Route: 048
     Dates: start: 20130424, end: 20130809
  2. FUROSEMIDE [Concomitant]
     Indication: OLIGURIA
     Dosage: 20 MG/ 2ML
     Route: 042
     Dates: start: 20130315, end: 20130815
  3. SOLUMEDROL [Concomitant]
     Indication: TRANSPLANT REJECTION
     Dosage: 75 MG, UNKNOWN/D
     Route: 065
     Dates: start: 20130719, end: 20130721

REACTIONS (1)
  - Visual acuity reduced [Recovered/Resolved]
